FAERS Safety Report 10179870 (Version 1)
Quarter: 2014Q2

REPORT INFORMATION
  Report Type: Spontaneous
  Country: US (occurrence: US)
  Receive Date: 20140519
  Receipt Date: 20140519
  Transmission Date: 20141212
  Serious: No
  Sender: FDA-Public Use
  Company Number: US-AMGEN INC.-USASP2013069681

PATIENT
  Age: 74 Year
  Sex: Female

DRUGS (4)
  1. PROLIA [Suspect]
     Indication: OSTEOPOROSIS POSTMENOPAUSAL
     Dosage: UNK
     Route: 065
  2. TRAZODONE [Concomitant]
     Dosage: UNK
     Route: 065
     Dates: start: 2011
  3. LOSARTAN [Concomitant]
     Dosage: UNK
     Route: 065
     Dates: start: 2011
  4. CITALOPRAM [Concomitant]
     Dosage: UNK
     Route: 065
     Dates: start: 2011

REACTIONS (3)
  - Dermatitis infected [Unknown]
  - Pain [Unknown]
  - Dermatitis acneiform [Unknown]
